FAERS Safety Report 12229687 (Version 1)
Quarter: 2016Q2

REPORT INFORMATION
  Report Type: Spontaneous
  Country: US (occurrence: US)
  Receive Date: 20160401
  Receipt Date: 20160401
  Transmission Date: 20160815
  Serious: No
  Sender: FDA-Public Use
  Company Number: US-JNJFOC-20160307471

PATIENT
  Age: 77 Year
  Sex: Female
  Weight: 92.53 kg

DRUGS (12)
  1. ATENOLOL. [Concomitant]
     Active Substance: ATENOLOL
     Route: 065
  2. CYSTIT [Concomitant]
     Indication: URINARY TRACT INFECTION
     Route: 065
  3. DIGOXIN. [Concomitant]
     Active Substance: DIGOXIN
     Dosage: MONDAY,??WEDNESDAY, FRIDAY
     Route: 065
  4. LEVOTHYROXINE. [Concomitant]
     Active Substance: LEVOTHYROXINE
     Indication: THYROID DISORDER
     Route: 065
  5. AZELASTINE [Concomitant]
     Active Substance: AZELASTINE
     Route: 065
  6. PRAVASTATIN SODIUM. [Concomitant]
     Active Substance: PRAVASTATIN SODIUM
     Indication: BLOOD CHOLESTEROL ABNORMAL
     Dosage: MONDAY, WEDNESDAY, FRIDAY
     Route: 065
  7. ALBUTEROL SULFATE. [Concomitant]
     Active Substance: ALBUTEROL SULFATE
     Route: 065
  8. XARELTO [Suspect]
     Active Substance: RIVAROXABAN
     Indication: CEREBROVASCULAR ACCIDENT PROPHYLAXIS
     Route: 048
     Dates: start: 20160305
  9. ZETIA [Concomitant]
     Active Substance: EZETIMIBE
     Indication: BLOOD CHOLESTEROL ABNORMAL
     Route: 065
  10. XARELTO [Suspect]
     Active Substance: RIVAROXABAN
     Indication: ATRIAL FIBRILLATION
     Route: 048
     Dates: start: 20160305
  11. FLONASE [Concomitant]
     Active Substance: FLUTICASONE PROPIONATE
     Route: 065
  12. EPIPEN [Concomitant]
     Active Substance: EPINEPHRINE
     Route: 065

REACTIONS (6)
  - Feeling hot [Not Recovered/Not Resolved]
  - Language disorder [Not Recovered/Not Resolved]
  - Inappropriate schedule of drug administration [Unknown]
  - Peripheral coldness [Not Recovered/Not Resolved]
  - Paraesthesia [Not Recovered/Not Resolved]
  - Speech disorder [Not Recovered/Not Resolved]

NARRATIVE: CASE EVENT DATE: 20160305
